FAERS Safety Report 5153629-X (Version None)
Quarter: 2006Q4

REPORT INFORMATION
  Report Type: 
  Country: None (occurrence: None)
  Receive Date: 20061114
  Receipt Date: 20061030
  Transmission Date: 20070319
  Serious: Yes (Hospitalization)
  Sender: FDA-Public Use
  Company Number: GXKR2006TR06777

PATIENT
  Age: 44 Year
  Sex: Female

DRUGS (1)
  1. ISONIAZID [Suspect]
     Dosage: 3.1 G, ORAL
     Route: 048

REACTIONS (7)
  - CONVULSION [None]
  - DEPRESSED LEVEL OF CONSCIOUSNESS [None]
  - HEPATITIS [None]
  - INTENTIONAL OVERDOSE [None]
  - LOSS OF CONSCIOUSNESS [None]
  - METABOLIC ACIDOSIS [None]
  - SUICIDE ATTEMPT [None]
